FAERS Safety Report 9126796 (Version 1)
Quarter: 2013Q1

REPORT INFORMATION
  Report Type: Spontaneous
  Country: US (occurrence: US)
  Receive Date: 20130122
  Receipt Date: 20130122
  Transmission Date: 20140127
  Serious: No
  Sender: FDA-Public Use
  Company Number: US-PFIZER INC-2013024773

PATIENT
  Sex: 0

DRUGS (2)
  1. SUTENT [Suspect]
     Dosage: 50 MG, UNK
  2. SUTENT [Suspect]
     Dosage: 37.5 MG, UNK

REACTIONS (1)
  - Stomatitis [Unknown]
